FAERS Safety Report 5139563-X (Version None)
Quarter: 2006Q4

REPORT INFORMATION
  Report Type: 
  Country: None (occurrence: None)
  Receive Date: 20061024
  Receipt Date: 20061012
  Transmission Date: 20070319
  Serious: Yes (Hospitalization)
  Sender: FDA-Public Use
  Company Number: 2006126012

PATIENT

DRUGS (2)
  1. CARDENALIN (DOXAZOSIN) [Suspect]
     Dosage: ORAL
     Route: 048
  2. UNSPECIFIED CALCIUM ANTAGONIST (CALCIUM CHANNEL BLOCKERS) [Concomitant]

REACTIONS (2)
  - ELECTROCARDIOGRAM QT PROLONGED [None]
  - VENTRICULAR FIBRILLATION [None]
